FAERS Safety Report 23975969 (Version 1)
Quarter: 2024Q2

REPORT INFORMATION
  Report Type: Other
  Country: FR (occurrence: FR)
  Receive Date: 20240614
  Receipt Date: 20240614
  Transmission Date: 20240716
  Serious: Yes (Life-Threatening, Hospitalization, Other)
  Sender: FDA-Public Use
  Company Number: FR-Renata Limited-2158132

PATIENT
  Age: 61 Year
  Sex: Female

DRUGS (2)
  1. RISPERIDONE [Suspect]
     Active Substance: RISPERIDONE
     Indication: Psychotic disorder
     Route: 065
     Dates: start: 201510
  2. DULOXETINE [Concomitant]
     Active Substance: DULOXETINE
     Route: 065
     Dates: start: 201510

REACTIONS (2)
  - Acute respiratory distress syndrome [Recovered/Resolved]
  - Eosinophilia [Recovered/Resolved]
